FAERS Safety Report 6374383-X (Version None)
Quarter: 2009Q3

REPORT INFORMATION
  Report Type: 
  Country: None (occurrence: None)
  Receive Date: 20090921
  Receipt Date: 20090921
  Transmission Date: 20100115
  Serious: Yes (Other)
  Sender: FDA-Public Use
  Company Number: None

PATIENT
  Sex: Male

DRUGS (1)
  1. COSOPT [Suspect]
     Indication: GLAUCOMA
     Dosage: ONE GTT OU BID
     Route: 031
     Dates: start: 20081201, end: 20090106

REACTIONS (1)
  - NO ADVERSE EVENT [None]
